FAERS Safety Report 15467660 (Version 5)
Quarter: 2022Q1

REPORT INFORMATION
  Report Type: Report from Study
  Country: NL (occurrence: NL)
  Receive Date: 20181005
  Receipt Date: 20220103
  Transmission Date: 20220423
  Serious: Yes (Other)
  Sender: FDA-Public Use
  Company Number: NL-AUROBINDO-AUR-APL-2018-048677

PATIENT
  Age: 64 Year
  Sex: Male

DRUGS (10)
  1. PREDNISONE [Suspect]
     Active Substance: PREDNISONE
     Indication: Lymphadenopathy
     Dosage: UNK
     Route: 065
  2. PREDNISONE [Suspect]
     Active Substance: PREDNISONE
     Indication: Disorder of orbit
  3. PREDNISONE [Suspect]
     Active Substance: PREDNISONE
     Indication: Prostatic disorder
  4. PREDNISONE [Suspect]
     Active Substance: PREDNISONE
     Indication: Pancreatic disorder
  5. PREDNISONE [Suspect]
     Active Substance: PREDNISONE
     Indication: Immunoglobulin G4 related disease
  6. METHOTREXATE [Suspect]
     Active Substance: METHOTREXATE
     Indication: Lymphadenopathy
     Dosage: 15 MILLIGRAM, EVERY WEEK
     Route: 065
  7. METHOTREXATE [Suspect]
     Active Substance: METHOTREXATE
     Indication: Disorder of orbit
  8. METHOTREXATE [Suspect]
     Active Substance: METHOTREXATE
     Indication: Prostatic disorder
  9. METHOTREXATE [Suspect]
     Active Substance: METHOTREXATE
     Indication: Pancreatic disorder
  10. METHOTREXATE [Suspect]
     Active Substance: METHOTREXATE
     Indication: Immunoglobulin G4 related disease

REACTIONS (3)
  - Therapy partial responder [Unknown]
  - Treatment failure [Unknown]
  - Therapeutic response decreased [Unknown]
